FAERS Safety Report 23987566 (Version 2)
Quarter: 2024Q2

REPORT INFORMATION
  Report Type: Report from Study
  Country: NZ (occurrence: NZ)
  Receive Date: 20240618
  Receipt Date: 20240627
  Transmission Date: 20240715
  Serious: Yes (Other)
  Sender: FDA-Public Use
  Company Number: NZ-002147023-NVSC2022NZ156405

PATIENT
  Sex: Female

DRUGS (3)
  1. COSENTYX [Suspect]
     Active Substance: SECUKINUMAB
     Indication: Psoriasis
     Dosage: UNK
     Route: 058
     Dates: start: 2021
  2. COSENTYX [Suspect]
     Active Substance: SECUKINUMAB
     Dosage: UNK
     Route: 058
     Dates: start: 20220311
  3. COSENTYX [Suspect]
     Active Substance: SECUKINUMAB
     Dosage: UNK
     Route: 058
     Dates: start: 20240602

REACTIONS (8)
  - Dermatitis bullous [Unknown]
  - Pemphigoid [Unknown]
  - Skin disorder [Unknown]
  - Rash pruritic [Unknown]
  - Blister [Unknown]
  - Blood immunoglobulin E increased [Unknown]
  - Drug hypersensitivity [Unknown]
  - Eczema [Unknown]
